FAERS Safety Report 10007462 (Version 1)
Quarter: 2014Q1

REPORT INFORMATION
  Report Type: Spontaneous
  Country: US (occurrence: None)
  Receive Date: 20140312
  Receipt Date: 20140312
  Transmission Date: 20141002
  Serious: Yes (Hospitalization)
  Sender: FDA-Public Use
  Company Number: None

PATIENT
  Sex: 0

DRUGS (1)
  1. HURRICANE SPRAY [Suspect]
     Indication: ECHOCARDIOGRAM
     Dosage: 3 SPRAYS ONCE TO THROAT

REACTIONS (1)
  - Methaemoglobinaemia [None]
